FAERS Safety Report 6642312-7 (Version None)
Quarter: 2010Q1

REPORT INFORMATION
  Report Type: 
  Country: None (occurrence: None)
  Receive Date: 20100319
  Receipt Date: 20100311
  Transmission Date: 20100710
  Serious: Yes (Hospitalization)
  Sender: FDA-Public Use
  Company Number: JP-BAYER-201010123BYL

PATIENT
  Age: 77 Year
  Sex: Male
  Weight: 73 kg

DRUGS (10)
  1. NEXAVAR [Suspect]
     Indication: HEPATIC NEOPLASM MALIGNANT
     Dosage: TOTAL DAILY DOSE: 800 MG  UNIT DOSE: 200 MG
     Route: 048
     Dates: start: 20090701, end: 20091019
  2. NEXAVAR [Suspect]
     Dosage: UNIT DOSE: 200 MG
     Route: 048
     Dates: start: 20091020, end: 20091027
  3. NEXAVAR [Suspect]
     Dosage: UNIT DOSE: 200 MG
     Route: 048
     Dates: start: 20091028, end: 20091214
  4. GLAKAY [Suspect]
     Indication: OSTEOPOROSIS
     Route: 048
     Dates: start: 20091117, end: 20091221
  5. HARNAL [Concomitant]
     Dosage: FROM BEFORE ADMINISTRATION
     Route: 048
  6. GLYCYRON [Concomitant]
     Dosage: FROM BEFORE ADMINISTRATION
     Route: 048
  7. URSO 250 [Concomitant]
     Dosage: FROM BEFORE ADMINISTRATION
     Route: 048
  8. MUCOSTA [Concomitant]
     Dosage: FROM BEFORE ADMINISTRATION
     Route: 048
  9. OLMESARTAN MEDOXOMIL [Concomitant]
     Dosage: FROM BEFORE ADMINISTRATION
     Route: 048
  10. HIRUDOID [Concomitant]
     Indication: PROPHYLAXIS
     Route: 061
     Dates: start: 20090908

REACTIONS (7)
  - DIARRHOEA [None]
  - HEPATIC FUNCTION ABNORMAL [None]
  - HYPERTENSION [None]
  - OSTEOPOROSIS [None]
  - PALMAR-PLANTAR ERYTHRODYSAESTHESIA SYNDROME [None]
  - RASH [None]
  - TINEA PEDIS [None]
